FAERS Safety Report 5699437-2 (Version None)
Quarter: 2008Q2

REPORT INFORMATION
  Report Type: 
  Country: None (occurrence: None)
  Receive Date: 20080407
  Receipt Date: 20080407
  Transmission Date: 20081010
  Serious: Yes (Life-Threatening)
  Sender: FDA-Public Use
  Company Number: None

PATIENT
  Age: 18 Year
  Sex: Female
  Weight: 56.6996 kg

DRUGS (2)
  1. EPHEDRINE SULFATE 50MG/ML HOSPIRA [Suspect]
     Dosage: 10MG  IV
     Route: 042
     Dates: start: 20080327, end: 20080327
  2. SEVOFLURANE [Concomitant]

REACTIONS (3)
  - BLOOD PRESSURE SYSTOLIC DECREASED [None]
  - HEART RATE DECREASED [None]
  - OXYGEN SATURATION DECREASED [None]
